FAERS Safety Report 26139249 (Version 1)
Quarter: 2025Q4

REPORT INFORMATION
  Report Type: Other
  Country: EU (occurrence: EU)
  Receive Date: 20251210
  Receipt Date: 20251210
  Transmission Date: 20260118
  Serious: Yes (Life-Threatening, Other)
  Sender: MACLEODS
  Company Number: None

PATIENT

DRUGS (7)
  1. CLOPIDOGREL [Suspect]
     Active Substance: CLOPIDOGREL BISULFATE
     Indication: Prophylaxis
     Dosage: 75 MILLIGRAM DAILY
     Route: 048
     Dates: start: 20251022, end: 20251031
  2. AMLODIPINE\VALSARTAN [Suspect]
     Active Substance: AMLODIPINE\VALSARTAN
     Indication: Hypertension
     Dosage: 1/160 MILLIGRAM PER DAY
     Route: 048
     Dates: start: 20251022, end: 20251031
  3. LATANOPROST [Suspect]
     Active Substance: LATANOPROST
     Indication: Glaucoma
     Dosage: 50 UG/(100.G)
     Route: 065
     Dates: start: 20251022, end: 20251031
  4. COSOPT [Suspect]
     Active Substance: DORZOLAMIDE HYDROCHLORIDE\TIMOLOL MALEATE
     Indication: Glaucoma
     Dosage: 1-2 DROPS IN EYES TWICE DAILY ,2%-0.5% OPHTHALMIC SOLUTION
     Dates: start: 20251022, end: 20251031
  5. PANTOPRAZOLE [Suspect]
     Active Substance: PANTOPRAZOLE
     Indication: Dyspepsia
     Dosage: 40 MILLIGRAM DAILY
     Route: 048
     Dates: start: 20251022, end: 20251031
  6. BISOPROLOL FUMARATE [Suspect]
     Active Substance: BISOPROLOL FUMARATE
     Indication: Tachycardia
     Dosage: 5 MILLIGRAM PER DAY
     Route: 048
     Dates: start: 20251022, end: 20251031
  7. ROSUVASTATIN [Suspect]
     Active Substance: ROSUVASTATIN
     Indication: Arteriosclerosis
     Dosage: 10 MILLIGRAM PER DAY
     Route: 048
     Dates: start: 20251022, end: 20251031

REACTIONS (1)
  - Skin cancer [Not Recovered/Not Resolved]

NARRATIVE: CASE EVENT DATE: 20251022
